FAERS Safety Report 17098333 (Version 1)
Quarter: 2019Q4

REPORT INFORMATION
  Report Type: Spontaneous
  Country: US (occurrence: US)
  Receive Date: 20191105
  Receipt Date: 20191105
  Transmission Date: 20200122
  Serious: No
  Sender: FDA-Public Use
  Company Number: None

PATIENT
  Age: 67 Year
  Sex: Female

DRUGS (1)
  1. COMPLERA [Suspect]
     Active Substance: EMTRICITABINE\RILPIVIRINE HYDROCHLORIDE\TENOFOVIR DISOPROXIL FUMARATE
     Dosage: ?          OTHER DOSE:200/25/300MG;?
     Route: 048
     Dates: start: 201712

REACTIONS (4)
  - Product dispensing error [None]
  - Gastric disorder [None]
  - Product dose omission [None]
  - Diverticulitis [None]

NARRATIVE: CASE EVENT DATE: 20190905
